FAERS Safety Report 9892483 (Version 1)
Quarter: 2014Q1

REPORT INFORMATION
  Report Type: Spontaneous
  Country: CA (occurrence: CA)
  Receive Date: 20140212
  Receipt Date: 20140212
  Transmission Date: 20141002
  Serious: Yes (Life-Threatening, Hospitalization, Disabling, Other)
  Sender: FDA-Public Use
  Company Number: CA-TEVA-462161USA

PATIENT
  Age: 56 Year
  Sex: Female
  Weight: 70.37 kg

DRUGS (6)
  1. HYDROCHLOROTHIAZIDE [Suspect]
     Dosage: 25 MILLIGRAM DAILY;
     Route: 048
  2. HYDROCHLOROTHIAZIDE [Suspect]
     Dosage: 25 MILLIGRAM DAILY;
     Route: 048
  3. NOVO-HYDRAZIDE [Suspect]
  4. AVAPRO [Concomitant]
  5. OMEPRAZOLE [Concomitant]
  6. SYNTHROID [Concomitant]

REACTIONS (2)
  - Pancreatic mass [Not Recovered/Not Resolved]
  - Pancreatitis [Not Recovered/Not Resolved]
